FAERS Safety Report 11259024 (Version 1)
Quarter: 2015Q3

REPORT INFORMATION
  Report Type: Spontaneous
  Country: US (occurrence: None)
  Receive Date: 20150709
  Receipt Date: 20150709
  Transmission Date: 20151125
  Serious: Yes (Other)
  Sender: FDA-Public Use
  Company Number: None

PATIENT
  Age: 78 Year
  Sex: Male
  Weight: 106 kg

DRUGS (19)
  1. POISE PAD [Concomitant]
  2. TESTOSTERONE CYP [Concomitant]
     Active Substance: TESTOSTERONE CYPIONATE
  3. ATORVASTATIN CALCIUM. [Concomitant]
     Active Substance: ATORVASTATIN CALCIUM
  4. OMEPRAZOLE. [Concomitant]
     Active Substance: OMEPRAZOLE
  5. ACETAMINOPHEN. [Concomitant]
     Active Substance: ACETAMINOPHEN
  6. ARTIFICIAL TEARS POLYVINYL ALCOHOL [Concomitant]
  7. GLOVE VINYL [Concomitant]
  8. VALSARTAN. [Concomitant]
     Active Substance: VALSARTAN
  9. CHLORTHALIDONE. [Concomitant]
     Active Substance: CHLORTHALIDONE
  10. HYDROPHILIC (EQV AQUAPHOR) [Concomitant]
  11. SALIVA, ARTIFICIAL [Concomitant]
  12. WARFARIN [Concomitant]
     Active Substance: WARFARIN
  13. WARFARIN [Suspect]
     Active Substance: WARFARIN
     Indication: ATRIAL FIBRILLATION
     Route: 048
     Dates: start: 20150701, end: 20150707
  14. MENTHOL/M-SALICYLATE [Concomitant]
  15. PREDNISOLONE ACETATE. [Concomitant]
     Active Substance: PREDNISOLONE ACETATE
  16. ASPIRIN. [Concomitant]
     Active Substance: ASPIRIN
  17. CAPSAICIN. [Concomitant]
     Active Substance: CAPSAICIN
  18. CHOLECALCIFEROL (VIT D3) [Concomitant]
  19. LIDOCAINE. [Concomitant]
     Active Substance: LIDOCAINE

REACTIONS (4)
  - Product substitution issue [None]
  - Sleep disorder [None]
  - Product quality issue [None]
  - Feeling abnormal [None]

NARRATIVE: CASE EVENT DATE: 20150701
